FAERS Safety Report 18156794 (Version 1)
Quarter: 2020Q3

REPORT INFORMATION
  Report Type: Spontaneous
  Country: JP (occurrence: JP)
  Receive Date: 20200817
  Receipt Date: 20200817
  Transmission Date: 20201103
  Serious: Yes (Hospitalization, Other)
  Sender: FDA-Public Use
  Company Number: JP-PFIZER INC-2015189601

PATIENT
  Age: 4 Decade
  Sex: Female

DRUGS (4)
  1. TS?1 [Suspect]
     Active Substance: GIMERACIL\OTERACIL\TEGAFUR
     Indication: GASTRIC CANCER
     Dosage: UNK (100 MG/BODY)
  2. GIMERACIL/OTERACIL POTASSIUM/TEGAFUR [Suspect]
     Active Substance: GIMERACIL\OTERACIL\TEGAFUR
     Indication: GASTRIC CANCER
     Dosage: UNK (100 MG/BODY)
  3. PACLITAXEL. [Suspect]
     Active Substance: PACLITAXEL
     Indication: BONE CANCER METASTATIC
     Dosage: 50 MG/M2, CYCLIC (ON DAY 1 AND DAY 8 1{CYCLICAL})
  4. PACLITAXEL. [Suspect]
     Active Substance: PACLITAXEL
     Indication: ADENOCARCINOMA GASTRIC

REACTIONS (2)
  - Neuropathy peripheral [Unknown]
  - Maternal exposure during pregnancy [Unknown]
